FAERS Safety Report 20435959 (Version 5)
Quarter: 2022Q2

REPORT INFORMATION
  Report Type: Spontaneous
  Country: NL (occurrence: NL)
  Receive Date: 20220207
  Receipt Date: 20220511
  Transmission Date: 20220720
  Serious: Yes (Death, Life-Threatening, Hospitalization, Other)
  Sender: FDA-Public Use
  Company Number: NL-PFIZER INC-202200074936

PATIENT
  Age: 67 Year
  Sex: Male

DRUGS (16)
  1. VORICONAZOLE [Suspect]
     Active Substance: VORICONAZOLE
     Indication: Aspergillus infection
     Dosage: UNK (ISAVUCONAZOLE WAS SWITCHED BACK TO VORICONAZOLE)
     Route: 065
  2. VORICONAZOLE [Suspect]
     Active Substance: VORICONAZOLE
     Indication: Bronchopulmonary aspergillosis
  3. VORICONAZOLE [Suspect]
     Active Substance: VORICONAZOLE
     Indication: Antifungal treatment
  4. CRESEMBA [Suspect]
     Active Substance: ISAVUCONAZONIUM SULFATE
     Indication: Mucormycosis
     Dosage: 200 MILLIGRAM, ONCE A DAY
     Route: 042
     Dates: start: 202104
  5. CRESEMBA [Suspect]
     Active Substance: ISAVUCONAZONIUM SULFATE
     Indication: Disseminated mucormycosis
     Dosage: 600 MILLIGRAM, ONCE A DAY
     Route: 042
     Dates: start: 20210406
  6. CRESEMBA [Suspect]
     Active Substance: ISAVUCONAZONIUM SULFATE
     Indication: Antifungal treatment
     Dosage: UNK (VORICONAZOLE WAS SWITCHED BACK TO ISAVUCONAZOLE)
  7. AMPHOTERICIN B [Suspect]
     Active Substance: AMPHOTERICIN B
     Indication: Mucormycosis
     Dosage: UNK (NEBULIZED)
  8. AMPHOTERICIN B [Suspect]
     Active Substance: AMPHOTERICIN B
     Indication: Disseminated mucormycosis
  9. AMPHOTERICIN B [Suspect]
     Active Substance: AMPHOTERICIN B
     Indication: Bronchopulmonary aspergillosis
  10. AMPHOTERICIN B [Suspect]
     Active Substance: AMPHOTERICIN B
     Indication: Antifungal treatment
  11. AMPHOTERICIN B [Suspect]
     Active Substance: AMPHOTERICIN B
     Indication: COVID-19
     Dosage: UNK
     Route: 065
  12. AMPHOTERICIN B [Suspect]
     Active Substance: AMPHOTERICIN B
     Indication: Mucormycosis
  13. AMPHOTERICIN B [Suspect]
     Active Substance: AMPHOTERICIN B
     Indication: Antifungal treatment
  14. OXYGEN [Concomitant]
     Active Substance: OXYGEN
     Indication: Endotracheal intubation
     Dosage: UNK
     Route: 065
  15. DEXAMETHASONE [Concomitant]
     Active Substance: DEXAMETHASONE
     Indication: COVID-19
     Dosage: 6 MILLIGRAM, ONCE A DAY
     Route: 042
  16. TOCILIZUMAB [Concomitant]
     Active Substance: TOCILIZUMAB
     Indication: COVID-19
     Dosage: 800 MILLIGRAM, ONCE A DAY (800 MILLIGRAM (SINGLE DOSE)
     Route: 065

REACTIONS (19)
  - Treatment failure [Fatal]
  - Disease progression [Fatal]
  - Hepatic function abnormal [Fatal]
  - Off label use [Fatal]
  - COVID-19 [Fatal]
  - Condition aggravated [Fatal]
  - Drug ineffective [Unknown]
  - Mucormycosis [Fatal]
  - Aspergillus infection [Unknown]
  - Tracheobronchitis [Unknown]
  - Arrhythmia [Unknown]
  - Bronchopulmonary aspergillosis [Unknown]
  - Haemoptysis [Unknown]
  - Hypoxia [Unknown]
  - Thrombocytopenia [Unknown]
  - Respiratory disorder [Unknown]
  - Acute kidney injury [Unknown]
  - Fungal cystitis [Not Recovered/Not Resolved]
  - Product use issue [Recovered/Resolved]
